FAERS Safety Report 8967185 (Version 1)
Quarter: 2012Q4

REPORT INFORMATION
  Report Type: Report from Study
  Country: US (occurrence: US)
  Receive Date: 20121217
  Receipt Date: 20121217
  Transmission Date: 20130627
  Serious: Yes (Other)
  Sender: FDA-Public Use
  Company Number: US-SANOFI-AVENTIS-2012SA091229

PATIENT
  Sex: Female

DRUGS (1)
  1. AFLIBERCEPT [Suspect]
     Indication: METASTATIC BREAST CANCER
     Route: 042

REACTIONS (1)
  - Left ventricular failure [Unknown]
